FAERS Safety Report 10058369 (Version 1)
Quarter: 2014Q2

REPORT INFORMATION
  Report Type: Spontaneous
  Country: US (occurrence: None)
  Receive Date: 20140403
  Receipt Date: 20140403
  Transmission Date: 20141212
  Serious: Yes (Other)
  Sender: FDA-Public Use
  Company Number: None

PATIENT
  Age: 84 Year
  Sex: Female
  Weight: 58.97 kg

DRUGS (12)
  1. DULOXETINE (GENERIC FOR CYMBALTA) 30 MG- CAP-CITR [Suspect]
     Indication: NEUROPATHY PERIPHERAL
     Route: 048
  2. DULOXETINE (GENERIC FOR CYMBALTA) 30 MG- CAP-CITR [Suspect]
     Indication: OSTEOARTHRITIS
     Route: 048
  3. ASPIRIN [Concomitant]
  4. FOLIC ACID [Concomitant]
  5. CALCIUM/VIT D [Concomitant]
  6. VIT. C [Concomitant]
  7. OMEGA 3 FISH OIL (FISH OIL) [Concomitant]
  8. ASPIRIN 81 MG [Concomitant]
  9. HYDRALAZINE [Concomitant]
  10. LOSARTAN [Concomitant]
  11. ATENOLOL [Concomitant]
  12. FOSAMAX [Concomitant]

REACTIONS (6)
  - Abdominal pain upper [None]
  - Headache [None]
  - Pain [None]
  - Tremor [None]
  - Muscle spasms [None]
  - Dry mouth [None]
